FAERS Safety Report 9086241 (Version 1)
Quarter: 2013Q1

REPORT INFORMATION
  Report Type: Report from Study
  Country: US (occurrence: US)
  Receive Date: 20130131
  Receipt Date: 20130131
  Transmission Date: 20140127
  Serious: Yes (Hospitalization)
  Sender: FDA-Public Use
  Company Number: US-ABBOTT-12P-163-0992997-00

PATIENT
  Age: 37 Year
  Sex: Female

DRUGS (3)
  1. HUMIRA [Suspect]
     Indication: CROHN^S DISEASE
     Dates: start: 20120817
  2. HUMIRA [Suspect]
     Dates: start: 20120831
  3. FLAGYL [Concomitant]
     Indication: GASTROINTESTINAL INFECTION

REACTIONS (3)
  - Ileostomy [Unknown]
  - Post procedural infection [Unknown]
  - Procedural pain [Unknown]
